FAERS Safety Report 6312084-4 (Version None)
Quarter: 2009Q3

REPORT INFORMATION
  Report Type: 
  Country: None (occurrence: None)
  Receive Date: 20090813
  Receipt Date: 20090813
  Transmission Date: 20100115
  Serious: Yes (Life-Threatening)
  Sender: FDA-Public Use
  Company Number: None

PATIENT
  Age: 85 Year
  Sex: Male
  Weight: 75.8 kg

DRUGS (2)
  1. DECITABINE [Suspect]
     Indication: ACUTE LEUKAEMIA
     Dosage: 36 MG IV
     Route: 042
     Dates: start: 20090713, end: 20090717
  2. DECITABINE [Suspect]
     Indication: MYELODYSPLASTIC SYNDROME
     Dosage: 36 MG IV
     Route: 042
     Dates: start: 20090713, end: 20090717

REACTIONS (4)
  - DIZZINESS [None]
  - HAEMORRHAGE INTRACRANIAL [None]
  - SUBDURAL HAEMORRHAGE [None]
  - THROMBOCYTOPENIA [None]
